FAERS Safety Report 12450671 (Version 1)
Quarter: 2016Q2

REPORT INFORMATION
  Report Type: Spontaneous
  Country: US (occurrence: None)
  Receive Date: 20160608
  Receipt Date: 20160608
  Transmission Date: 20160815
  Serious: Yes (Life-Threatening, Hospitalization, Disabling, Other)
  Sender: FDA-Public Use
  Company Number: None

PATIENT
  Age: 52 Year
  Sex: Female
  Weight: 53.52 kg

DRUGS (9)
  1. FOLIC ACID. [Concomitant]
     Active Substance: FOLIC ACID
  2. MULTI-VITAMINS (CALCIUM PANTOTHENATE, FOLIC ACID, VITAMINS NOS) [Concomitant]
     Active Substance: VITAMINS
  3. ZOLOFT [Suspect]
     Active Substance: SERTRALINE HYDROCHLORIDE
     Indication: STRESS
     Route: 048
     Dates: start: 20160201, end: 20160523
  4. GABAPENTIN. [Concomitant]
     Active Substance: GABAPENTIN
  5. THIAMINE. [Concomitant]
     Active Substance: THIAMINE
  6. PROPRANOLOL [Concomitant]
     Active Substance: PROPRANOLOL\PROPRANOLOL HYDROCHLORIDE
  7. VITAMIN K [Concomitant]
     Active Substance: PHYTONADIONE
  8. PROZAC [Concomitant]
     Active Substance: FLUOXETINE HYDROCHLORIDE
  9. MILK THISTLE [Concomitant]
     Active Substance: MILK THISTLE

REACTIONS (14)
  - Insomnia [None]
  - Agitation [None]
  - Decreased appetite [None]
  - Suicidal ideation [None]
  - Obsessive thoughts [None]
  - Malnutrition [None]
  - Anxiety [None]
  - Weight decreased [None]
  - Muscle twitching [None]
  - Diarrhoea [None]
  - Night sweats [None]
  - Abnormal behaviour [None]
  - Suicide attempt [None]
  - Paraesthesia [None]

NARRATIVE: CASE EVENT DATE: 20160307
